FAERS Safety Report 8164153-4 (Version None)
Quarter: 2012Q1

REPORT INFORMATION
  Report Type: 
  Country: None (occurrence: None)
  Receive Date: 20120224
  Receipt Date: 20120215
  Transmission Date: 20120608
  Serious: Yes (Hospitalization)
  Sender: FDA-Public Use
  Company Number: US-B.I. PHARMACEUTICALS,INC./RIDGEFIELD-2012-BP-02163BP

PATIENT
  Age: 40 Year
  Sex: Male

DRUGS (5)
  1. REVLIMID [Concomitant]
  2. TRANJECT [Concomitant]
  3. TRADJENTA [Suspect]
     Indication: TYPE 2 DIABETES MELLITUS
     Dosage: 5 MG
     Route: 048
     Dates: start: 20120201, end: 20120202
  4. METFORMIN HCL [Concomitant]
  5. CHEMOTHERAPY [Concomitant]

REACTIONS (2)
  - NAUSEA [None]
  - PARAESTHESIA [None]
